FAERS Safety Report 9730215 (Version 3)
Quarter: 2013Q4

REPORT INFORMATION
  Report Type: Report from Study
  Country: RU (occurrence: RU)
  Receive Date: 20131202
  Receipt Date: 20131206
  Transmission Date: 20140711
  Serious: Yes (Life-Threatening, Hospitalization)
  Sender: FDA-Public Use
  Company Number: RU-JNJFOC-20131116404

PATIENT
  Age: 12 Year
  Sex: Female
  Weight: 45.5 kg

DRUGS (6)
  1. BLINDED; GOLIMUMA [Suspect]
     Indication: JUVENILE IDIOPATHIC ARTHRITIS
     Dosage: WEEK 0
     Route: 058
     Dates: start: 20120723
  2. BLINDED; GOLIMUMA [Suspect]
     Indication: JUVENILE IDIOPATHIC ARTHRITIS
     Dosage: WEEK 68
     Route: 058
     Dates: start: 20131108
  3. PLACEBO [Suspect]
     Indication: JUVENILE IDIOPATHIC ARTHRITIS
     Dosage: WEEK 0
     Route: 058
     Dates: start: 20120723
  4. PLACEBO [Suspect]
     Indication: JUVENILE IDIOPATHIC ARTHRITIS
     Dosage: WEEK 68
     Route: 058
     Dates: start: 20131108
  5. FOLIC ACID [Concomitant]
     Indication: PROPHYLAXIS
     Route: 048
     Dates: start: 20130115
  6. LEVOTHYROXINE SODIUM [Concomitant]
     Indication: AUTOIMMUNE THYROIDITIS
     Route: 048
     Dates: start: 20130115

REACTIONS (1)
  - Appendiceal abscess [Recovered/Resolved]
